FAERS Safety Report 7342847-8 (Version None)
Quarter: 2011Q1

REPORT INFORMATION
  Report Type: 
  Country: None (occurrence: None)
  Receive Date: 20110308
  Receipt Date: 20110308
  Transmission Date: 20110831
  Serious: Yes (Other)
  Sender: FDA-Public Use
  Company Number: None

PATIENT
  Sex: Female

DRUGS (2)
  1. HYDROXCHLOROQUINE [Suspect]
     Dosage: 20 MG. B.I.D.  10 MG. O.P.D.  20 MG. B.I.D.
     Dates: start: 20100913, end: 20100923
  2. HYDROXCHLOROQUINE [Suspect]
     Dosage: 20 MG. B.I.D.  10 MG. O.P.D.  20 MG. B.I.D.
     Dates: start: 20100825, end: 20100830

REACTIONS (1)
  - DRUG HYPERSENSITIVITY [None]
